FAERS Safety Report 9528646 (Version 2)
Quarter: 2013Q3

REPORT INFORMATION
  Report Type: Spontaneous
  Country: US (occurrence: US)
  Receive Date: 20130917
  Receipt Date: 20130917
  Transmission Date: 20140515
  Serious: No
  Sender: FDA-Public Use
  Company Number: US-BANPHARM-20120366

PATIENT
  Age: 81 Year
  Sex: Female
  Weight: 55.34 kg

DRUGS (1)
  1. ZYRTEC LIQUID GELS 10 MG [Suspect]
     Indication: URTICARIA
     Dosage: 2 DF,  ONCE AT NIGHT,
     Route: 048
     Dates: start: 20121109, end: 20121109

REACTIONS (3)
  - Initial insomnia [Unknown]
  - Incorrect dose administered [Recovered/Resolved]
  - Off label use [Unknown]
